FAERS Safety Report 14217530 (Version 2)
Quarter: 2017Q4

REPORT INFORMATION
  Report Type: Spontaneous
  Country: US (occurrence: US)
  Receive Date: 20171123
  Receipt Date: 20171227
  Transmission Date: 20180321
  Serious: Yes (Other)
  Sender: FDA-Public Use
  Company Number: US-ASTRAZENECA-2017SF17567

PATIENT
  Age: 16578 Day
  Sex: Male
  Weight: 98.9 kg

DRUGS (12)
  1. FARXIGA [Suspect]
     Active Substance: DAPAGLIFLOZIN PROPANEDIOL
     Indication: TYPE 2 DIABETES MELLITUS
     Route: 048
     Dates: start: 20170412, end: 20171115
  2. LOSARTAN. [Concomitant]
     Active Substance: LOSARTAN
     Route: 048
  3. INFLUENZA INJECTABLE [Concomitant]
     Dosage: SANOFI PASTEUR
     Route: 030
     Dates: start: 20171018
  4. AZITHROMYCIN ANHYDROUS. [Concomitant]
     Active Substance: AZITHROMYCIN ANHYDROUS
     Route: 048
  5. HYDROCHLOROTHIAZIDE. [Concomitant]
     Active Substance: HYDROCHLOROTHIAZIDE
     Dosage: HALF TABLET DAILY
  6. LEVOTHYROXINE. [Concomitant]
     Active Substance: LEVOTHYROXINE
     Dosage: ONE TABLET BY MOUTH EVERY MORNING ONE HOUR BEFORE BREAKFAST
  7. AMLODIPINE [Concomitant]
     Active Substance: AMLODIPINE BESYLATE
     Route: 048
  8. ASPIRIN. [Concomitant]
     Active Substance: ASPIRIN
     Route: 048
  9. GLIPIZIDE. [Concomitant]
     Active Substance: GLIPIZIDE
     Route: 048
  10. LOVASTATIN. [Concomitant]
     Active Substance: LOVASTATIN
     Route: 048
  11. AZITHROMYCIN ANHYDROUS. [Concomitant]
     Active Substance: AZITHROMYCIN ANHYDROUS
     Route: 048
  12. TRULICITY [Concomitant]
     Active Substance: DULAGLUTIDE
     Route: 058

REACTIONS (17)
  - Hypertension [Unknown]
  - Pneumonia [Unknown]
  - Torticollis [Unknown]
  - Rash [Unknown]
  - Oedema peripheral [Unknown]
  - Limb discomfort [Unknown]
  - Type V hyperlipidaemia [Unknown]
  - Organic erectile dysfunction [Unknown]
  - Hypoaesthesia [Unknown]
  - Peripheral arterial occlusive disease [Not Recovered/Not Resolved]
  - Skin hyperpigmentation [Unknown]
  - Pulse abnormal [Unknown]
  - Upper respiratory tract infection [Unknown]
  - Pain in extremity [Unknown]
  - Hepatic enzyme increased [Unknown]
  - Hypothyroidism [Unknown]
  - Headache [Unknown]

NARRATIVE: CASE EVENT DATE: 20171018
